FAERS Safety Report 4893466-4 (Version None)
Quarter: 2006Q1

REPORT INFORMATION
  Report Type: 
  Country: None (occurrence: None)
  Receive Date: 20060127
  Receipt Date: 20050118
  Transmission Date: 20060701
  Serious: No
  Sender: FDA-Public Use
  Company Number: US-BRISTOL-MYERS SQUIBB COMPANY-12828984

PATIENT
  Age: 30 Year
  Sex: Male
  Weight: 59 kg

DRUGS (2)
  1. KENALOG [Suspect]
     Indication: RHINITIS
     Route: 051
     Dates: start: 20050108
  2. TOPROL [Concomitant]

REACTIONS (2)
  - ANXIETY [None]
  - PANIC ATTACK [None]
